FAERS Safety Report 20896399 (Version 1)
Quarter: 2022Q2

REPORT INFORMATION
  Report Type: Spontaneous
  Country: US (occurrence: US)
  Receive Date: 20220531
  Receipt Date: 20220531
  Transmission Date: 20220721
  Serious: No
  Sender: FDA-Public Use
  Company Number: US-LUPIN PHARMACEUTICALS INC.-2022-07697

PATIENT
  Sex: Male

DRUGS (1)
  1. GAVILYTE G [Suspect]
     Active Substance: POLYETHYLENE GLYCOL 3350\POTASSIUM CHLORIDE\SODIUM BICARBONATE\SODIUM CHLORIDE\SODIUM SULFATE
     Indication: Bowel preparation
     Dosage: UNK (HE TOOK ONLY HALF GAVILYTE-G SOLUTION ON SUNDAY)
     Route: 065

REACTIONS (4)
  - Illness [Unknown]
  - Dizziness [Unknown]
  - Hypotension [Unknown]
  - Incorrect dose administered [Unknown]
